FAERS Safety Report 26118614 (Version 1)
Quarter: 2025Q4

REPORT INFORMATION
  Report Type: Spontaneous
  Country: EU (occurrence: EU)
  Receive Date: 20251203
  Receipt Date: 20251203
  Transmission Date: 20260117
  Serious: Yes (Other)
  Sender: JOHNSON AND JOHNSON
  Company Number: None

PATIENT
  Age: 41 Year
  Sex: Male

DRUGS (2)
  1. RILPIVIRINE [Suspect]
     Active Substance: RILPIVIRINE
     Indication: HIV infection
     Dosage: ONE INJECTION OF CABOTEGRAVIR 200MG/ML AND ONE INJECTION OF RILPIVIRINE 900MG/3ML EVERY TWO MONTHS.
     Route: 030
     Dates: start: 20250829, end: 20250829
  2. CABOTEGRAVIR [Suspect]
     Active Substance: CABOTEGRAVIR
     Indication: HIV infection
     Dosage: ONE INJECTION OF CABOTEGRAVIR 200MG/ML AND ONE INJECTION OF RILPIVIRINE 900MG/3ML EVERY TWO MONTHS.
     Route: 030
     Dates: start: 20250829, end: 20250829

REACTIONS (4)
  - Arthralgia [Recovered/Resolved]
  - Pruritus [Recovered/Resolved]
  - Paraesthesia [Recovered/Resolved]
  - Pruritus [Recovered/Resolved]

NARRATIVE: CASE EVENT DATE: 20250904
